FAERS Safety Report 10161716 (Version 1)
Quarter: 2014Q2

REPORT INFORMATION
  Report Type: Spontaneous
  Country: GB (occurrence: None)
  Receive Date: 20140507
  Receipt Date: 20140507
  Transmission Date: 20141212
  Serious: Yes (Hospitalization)
  Sender: FDA-Public Use
  Company Number: AUR-APL-2014-05217

PATIENT
  Age: 39 Year
  Sex: Female

DRUGS (5)
  1. SERTRALINE [Suspect]
     Indication: DEPRESSION
     Route: 048
     Dates: start: 20140213
  2. FERROUS SULPHATE (IRON) [Concomitant]
  3. FULTIUM-D3 (COLECALCIFEROL) [Concomitant]
  4. PROCYCLIDINE [Concomitant]
  5. IRSPERIDONE [Concomitant]

REACTIONS (2)
  - Rash pruritic [None]
  - Erythema multiforme [None]
